FAERS Safety Report 10025748 (Version 2)
Quarter: 2014Q1

REPORT INFORMATION
  Report Type: Spontaneous
  Country: US (occurrence: None)
  Receive Date: 20140318
  Receipt Date: 20140331
  Transmission Date: 20141002
  Serious: Yes (Other)
  Sender: FDA-Public Use
  Company Number: 2014P1001924

PATIENT
  Age: 51 Year
  Sex: Female
  Weight: 37.2 kg

DRUGS (2)
  1. MORPHINE [Suspect]
     Indication: PAIN
     Route: 042
     Dates: start: 201103
  2. SUPER STEROIDS [Concomitant]

REACTIONS (56)
  - Malaise [None]
  - Nausea [None]
  - Activities of daily living impaired [None]
  - Disorientation [None]
  - Acromegaly [None]
  - Amnesia [None]
  - Daydreaming [None]
  - Nasopharyngitis [None]
  - Hepatic pain [None]
  - Chest pain [None]
  - Local swelling [None]
  - Pituitary tumour [None]
  - Fall [None]
  - Psychosexual disorder [None]
  - Convulsion [None]
  - Restless legs syndrome [None]
  - Gigantism [None]
  - Pain in extremity [None]
  - Pain [None]
  - Joint swelling [None]
  - Arthralgia [None]
  - Oedema peripheral [None]
  - Ecchymosis [None]
  - Arthralgia [None]
  - Arthralgia [None]
  - Arthralgia [None]
  - Pain in extremity [None]
  - Joint injury [None]
  - Joint range of motion decreased [None]
  - Arthralgia [None]
  - Tooth fracture [None]
  - Cervical dysplasia [None]
  - Crying [None]
  - Tremor [None]
  - Gait disturbance [None]
  - Loss of consciousness [None]
  - Diarrhoea [None]
  - Vomiting [None]
  - Deja vu [None]
  - Cervical polyp [None]
  - Atrophic vulvovaginitis [None]
  - Dyspareunia [None]
  - Inadequate diet [None]
  - Tooth infection [None]
  - Tooth loss [None]
  - Device failure [None]
  - Weight decreased [None]
  - Asthenia [None]
  - Depression [None]
  - Anxiety [None]
  - Fatigue [None]
  - Head injury [None]
  - Amnesia [None]
  - Haematuria [None]
  - Pelvic pain [None]
  - Back pain [None]
